FAERS Safety Report 15034414 (Version 1)
Quarter: 2018Q2

REPORT INFORMATION
  Report Type: Spontaneous
  Country: DE (occurrence: DE)
  Receive Date: 20180620
  Receipt Date: 20180620
  Transmission Date: 20180711
  Serious: Yes (Hospitalization)
  Sender: FDA-Public Use
  Company Number: DE-TEVA-2018-DE-909188

PATIENT
  Age: 77 Year
  Sex: Male
  Weight: 86 kg

DRUGS (12)
  1. POLLSTIMOL [Concomitant]
     Active Substance: HERBALS
     Dosage: 23 MG, 1-0-0-0,
     Route: 048
  2. LEVOTHYROXINE. [Concomitant]
     Active Substance: LEVOTHYROXINE
     Dosage: 150 ?G, 1-0-0-0,
     Route: 048
  3. OMEPRAZOL [Concomitant]
     Active Substance: OMEPRAZOLE
     Dosage: 20 MG, 1-0-0-0,
     Route: 048
  4. AMLODIPINE [Concomitant]
     Active Substance: AMLODIPINE BESYLATE
     Dosage: 5 MG, 1-0-0-0,
     Route: 048
  5. XARELTO [Concomitant]
     Active Substance: RIVAROXABAN
     Dosage: 15 MG, 1-0-0-0,
     Route: 048
  6. HYDROCHLOROTHIAZIDE. [Suspect]
     Active Substance: HYDROCHLOROTHIAZIDE
     Dosage: 0.5 MG, 1-0-0-0,
     Route: 048
  7. BISOPROLOL [Concomitant]
     Active Substance: BISOPROLOL
     Dosage: 5 MG, 1-0-1-0
     Route: 048
  8. TAMSULOSIN [Concomitant]
     Active Substance: TAMSULOSIN
     Dosage: 0.4 MG, 1-0-0-0,
     Route: 048
  9. SIMVASTATIN. [Concomitant]
     Active Substance: SIMVASTATIN
     Dosage: 40 MG, 0-0-1-0, TABLETTEN
     Route: 048
  10. METAMIZOLE [Concomitant]
     Active Substance: METAMIZOLE
     Dosage: NEED
     Route: 065
  11. MOLSIDOMINE [Concomitant]
     Active Substance: MOLSIDOMINE
     Dosage: 8 MG, 0-0-1-0,
     Route: 048
  12. TORASEMID [Suspect]
     Active Substance: TORSEMIDE
     Dosage: 20 MG, 1-1-0-0,
     Route: 048

REACTIONS (6)
  - Hypokalaemia [Unknown]
  - Syncope [Unknown]
  - Medication monitoring error [Unknown]
  - Fall [Unknown]
  - Tachycardia [Unknown]
  - Dizziness [Unknown]
